FAERS Safety Report 15277606 (Version 2)
Quarter: 2020Q3

REPORT INFORMATION
  Report Type: Report from Study
  Country: DE (occurrence: DE)
  Receive Date: 20180814
  Receipt Date: 20180821
  Transmission Date: 20201104
  Serious: Yes (Hospitalization, Other)
  Sender: FDA-Public Use
  Company Number: DE-ASTRAZENECA-2016SE97456

PATIENT
  Age: 58 Year
  Sex: Male

DRUGS (29)
  1. MEDI4736 [Suspect]
     Active Substance: DURVALUMAB
     Indication: BLADDER TRANSITIONAL CELL CARCINOMA
     Route: 042
     Dates: start: 20161116, end: 20161116
  2. MEDI4736 [Suspect]
     Active Substance: DURVALUMAB
     Indication: BLADDER TRANSITIONAL CELL CARCINOMA
     Route: 042
     Dates: start: 20170315, end: 20170315
  3. MEDI4736 [Suspect]
     Active Substance: DURVALUMAB
     Indication: BLADDER TRANSITIONAL CELL CARCINOMA
     Route: 042
     Dates: start: 20170802, end: 20170802
  4. MEDI4736 [Suspect]
     Active Substance: DURVALUMAB
     Indication: BLADDER TRANSITIONAL CELL CARCINOMA
     Route: 042
     Dates: start: 20171220, end: 20171220
  5. MEDI4736 [Suspect]
     Active Substance: DURVALUMAB
     Indication: BLADDER TRANSITIONAL CELL CARCINOMA
     Route: 042
     Dates: start: 20180214, end: 20180214
  6. MEDI4736 [Suspect]
     Active Substance: DURVALUMAB
     Indication: BLADDER TRANSITIONAL CELL CARCINOMA
     Route: 042
     Dates: start: 20170927, end: 20170927
  7. MEDI4736 [Suspect]
     Active Substance: DURVALUMAB
     Indication: BLADDER TRANSITIONAL CELL CARCINOMA
     Route: 042
     Dates: start: 20160803, end: 20160803
  8. MEDI4736 [Suspect]
     Active Substance: DURVALUMAB
     Indication: BLADDER TRANSITIONAL CELL CARCINOMA
     Route: 042
     Dates: start: 20170510, end: 20170510
  9. MEDI4736 [Suspect]
     Active Substance: DURVALUMAB
     Indication: BLADDER TRANSITIONAL CELL CARCINOMA
     Route: 042
     Dates: start: 20180117, end: 20180117
  10. MEDI4736 [Suspect]
     Active Substance: DURVALUMAB
     Indication: BLADDER TRANSITIONAL CELL CARCINOMA
     Route: 042
     Dates: start: 20180314, end: 20180314
  11. MEDI4736 [Suspect]
     Active Substance: DURVALUMAB
     Indication: BLADDER TRANSITIONAL CELL CARCINOMA
     Route: 042
     Dates: start: 20180411, end: 20180411
  12. STUDY PROCEDURE [Suspect]
     Active Substance: INVESTIGATIONAL PRODUCT
     Indication: BLADDER TRANSITIONAL CELL CARCINOMA
     Dosage: POSSIBLE IMMUNE REACTION
     Route: 065
  13. MEDI4736 [Suspect]
     Active Substance: DURVALUMAB
     Indication: BLADDER TRANSITIONAL CELL CARCINOMA
     Route: 042
     Dates: start: 20161221, end: 20161221
  14. MEDI4736 [Suspect]
     Active Substance: DURVALUMAB
     Indication: BLADDER TRANSITIONAL CELL CARCINOMA
     Route: 042
     Dates: start: 20170607, end: 20170607
  15. MEDI4736 [Suspect]
     Active Substance: DURVALUMAB
     Indication: BLADDER TRANSITIONAL CELL CARCINOMA
     Route: 042
     Dates: start: 20170830, end: 20170830
  16. MEDI4736 [Suspect]
     Active Substance: DURVALUMAB
     Indication: BLADDER TRANSITIONAL CELL CARCINOMA
     Route: 042
     Dates: start: 20171025, end: 20171025
  17. MAGNESIUM [Concomitant]
     Active Substance: MAGNESIUM
     Indication: MUSCLE SPASMS
     Route: 048
  18. CARBIMAZOL [Concomitant]
     Active Substance: CARBIMAZOLE
     Indication: HYPERTHYROIDISM
     Route: 048
     Dates: start: 20160905, end: 20160919
  19. IBUPROFEN. [Concomitant]
     Active Substance: IBUPROFEN
     Indication: HEADACHE
     Dosage: 400.0MG AS REQUIRED
     Route: 048
     Dates: start: 20160824
  20. MEDI4736 [Suspect]
     Active Substance: DURVALUMAB
     Indication: BLADDER TRANSITIONAL CELL CARCINOMA
     Route: 042
     Dates: start: 20170215, end: 20170215
  21. MEDI4736 [Suspect]
     Active Substance: DURVALUMAB
     Indication: BLADDER TRANSITIONAL CELL CARCINOMA
     Route: 042
     Dates: start: 20170412, end: 20170412
  22. MEDI4736 [Suspect]
     Active Substance: DURVALUMAB
     Indication: BLADDER TRANSITIONAL CELL CARCINOMA
     Route: 042
     Dates: start: 20180705, end: 20180705
  23. MEDI4736 [Suspect]
     Active Substance: DURVALUMAB
     Indication: BLADDER TRANSITIONAL CELL CARCINOMA
     Route: 042
     Dates: start: 20171122, end: 20171122
  24. TREMELIMUMAB. [Suspect]
     Active Substance: TREMELIMUMAB
     Indication: BLADDER TRANSITIONAL CELL CARCINOMA
     Route: 042
     Dates: start: 20160803, end: 20160803
  25. TREMELIMUMAB. [Suspect]
     Active Substance: TREMELIMUMAB
     Indication: BLADDER TRANSITIONAL CELL CARCINOMA
     Route: 042
     Dates: start: 20160831, end: 20160831
  26. TREMELIMUMAB. [Suspect]
     Active Substance: TREMELIMUMAB
     Indication: BLADDER TRANSITIONAL CELL CARCINOMA
     Route: 042
     Dates: start: 20161116, end: 20161116
  27. MEDI4736 [Suspect]
     Active Substance: DURVALUMAB
     Indication: BLADDER TRANSITIONAL CELL CARCINOMA
     Route: 042
     Dates: start: 20160831, end: 20160831
  28. MEDI4736 [Suspect]
     Active Substance: DURVALUMAB
     Indication: BLADDER TRANSITIONAL CELL CARCINOMA
     Route: 042
     Dates: start: 20170118, end: 20170118
  29. PREDNISOLON [Concomitant]
     Active Substance: PREDNISOLONE
     Indication: HYPERTHYROIDISM
     Route: 048
     Dates: start: 20160905

REACTIONS (1)
  - Vomiting [Recovered/Resolved]

NARRATIVE: CASE EVENT DATE: 20160913
